FAERS Safety Report 15345927 (Version 1)
Quarter: 2018Q3

REPORT INFORMATION
  Report Type: Spontaneous
  Country: FR (occurrence: FR)
  Receive Date: 20180904
  Receipt Date: 20180904
  Transmission Date: 20181010
  Serious: Yes (Other)
  Sender: FDA-Public Use
  Company Number: FR-ROCHE-2178307

PATIENT
  Age: 24 Year
  Sex: Female

DRUGS (5)
  1. VALIUM [Suspect]
     Active Substance: DIAZEPAM
     Indication: MENTAL DISORDER
     Route: 048
     Dates: start: 20180511, end: 20180530
  2. LOXAPAC [Suspect]
     Active Substance: LOXAPINE
     Indication: MENTAL DISORDER
     Route: 048
     Dates: end: 20180530
  3. RISPERIDONE. [Concomitant]
     Active Substance: RISPERIDONE
     Route: 048
  4. LEPTICUR [Concomitant]
     Active Substance: TROPATEPINE HYDROCHLORIDE
     Route: 048
  5. QUETIAPINE. [Concomitant]
     Active Substance: QUETIAPINE
     Route: 048

REACTIONS (1)
  - Hepatitis [Recovering/Resolving]

NARRATIVE: CASE EVENT DATE: 20180530
